FAERS Safety Report 4409378-6 (Version None)
Quarter: 2004Q3

REPORT INFORMATION
  Report Type: 
  Country: None (occurrence: None)
  Receive Date: 20040727
  Receipt Date: 20040727
  Transmission Date: 20050211
  Serious: Yes (Other)
  Sender: FDA-Public Use
  Company Number: None

PATIENT
  Age: 44 Year
  Sex: Male

DRUGS (6)
  1. AVONEX [Suspect]
     Indication: MULTIPLE SCLEROSIS
     Dosage: 30 MCG /0.5 ML QW IM
     Route: 030
     Dates: start: 20030627, end: 20040421
  2. BACLOFEN [Concomitant]
  3. METHYLPHENIDATE HCL [Concomitant]
  4. VIT E [Concomitant]
  5. OXYCODONE HCL [Concomitant]
  6. PREDNISONE TAB [Concomitant]

REACTIONS (4)
  - EYE PAIN [None]
  - HEADACHE [None]
  - MUSCLE CRAMP [None]
  - PHARMACEUTICAL PRODUCT COMPLAINT [None]
